FAERS Safety Report 9767698 (Version 2)
Quarter: 2013Q3

REPORT INFORMATION
  Report Type: Spontaneous
  Country: JP (occurrence: None)
  Receive Date: 20130828
  Receipt Date: 20130829
  Transmission Date: 20140515
  Serious: Yes (Death)
  Sender: FDA-Public Use
  Company Number: TCI2013A05013

PATIENT
  Age: 48 Year
  Sex: Male

DRUGS (3)
  1. TAKEPRON [Suspect]
  2. PROPOFOL [Concomitant]
  3. ANTIHYPERTENSIVES [Concomitant]

REACTIONS (2)
  - Sepsis [None]
  - Toxic epidermal necrolysis [None]
